FAERS Safety Report 10029115 (Version 2)
Quarter: 2014Q2

REPORT INFORMATION
  Report Type: Spontaneous
  Country: RU (occurrence: RU)
  Receive Date: 20140321
  Receipt Date: 20140401
  Transmission Date: 20141212
  Serious: Yes (Other)
  Sender: FDA-Public Use
  Company Number: RU-009507513-1403RUS008472

PATIENT
  Age: 27 Year
  Sex: Female
  Weight: 57 kg

DRUGS (1)
  1. NUVARING [Suspect]
     Dosage: UNK
     Route: 067
     Dates: start: 20140220, end: 20140306

REACTIONS (3)
  - Uterine operation [Unknown]
  - Haemorrhage [Recovered/Resolved]
  - Hypercoagulation [Unknown]
